FAERS Safety Report 6338537-0 (Version None)
Quarter: 2009Q3

REPORT INFORMATION
  Report Type: 
  Country: None (occurrence: None)
  Receive Date: 20090901
  Receipt Date: 20090818
  Transmission Date: 20100115
  Serious: Yes (Life-Threatening, Disabling)
  Sender: FDA-Public Use
  Company Number: 8050881

PATIENT
  Age: 18 Year
  Sex: Female
  Weight: 67 kg

DRUGS (3)
  1. KEPPRA [Suspect]
     Indication: EPILEPSY
     Dosage: 1000 MG 3/D; PO
     Route: 048
     Dates: start: 20050701, end: 20071101
  2. KEPPRA [Suspect]
     Indication: EPILEPSY
     Dosage: 625 MG; PO
     Route: 048
  3. LAMOTRIGINE [Concomitant]

REACTIONS (8)
  - AGGRESSION [None]
  - BINGE EATING [None]
  - DELUSIONAL PERCEPTION [None]
  - DIZZINESS [None]
  - NERVOUSNESS [None]
  - PANIC ATTACK [None]
  - PARTIAL SEIZURES [None]
  - WEIGHT INCREASED [None]
